FAERS Safety Report 7290165-9 (Version None)
Quarter: 2011Q1

REPORT INFORMATION
  Report Type: 
  Country: None (occurrence: None)
  Receive Date: 20110214
  Receipt Date: 20110201
  Transmission Date: 20110831
  Serious: Yes (Other)
  Sender: FDA-Public Use
  Company Number: PHHY2011JP09040

PATIENT
  Sex: Male
  Weight: 74 kg

DRUGS (5)
  1. NORVASC [Concomitant]
     Dosage: UNK
     Route: 048
     Dates: start: 20050728, end: 20091216
  2. TENORMIN [Concomitant]
     Dosage: 25 MG
     Route: 048
     Dates: start: 20091217
  3. DIOVAN [Suspect]
     Indication: HYPERTENSION
     Dosage: 80 MG, DAILY
     Route: 048
     Dates: start: 20090519
  4. HERBESSER R [Concomitant]
     Dosage: 100 MG
     Route: 048
     Dates: start: 20091217
  5. LIVALO [Concomitant]
     Dosage: 2 MG
     Route: 048
     Dates: start: 20050728

REACTIONS (2)
  - MITRAL VALVE INCOMPETENCE [None]
  - ANAEMIA [None]
